FAERS Safety Report 18314158 (Version 2)
Quarter: 2020Q3

REPORT INFORMATION
  Report Type: Spontaneous
  Country: SE (occurrence: SE)
  Receive Date: 20200925
  Receipt Date: 20200930
  Transmission Date: 20201103
  Serious: Yes (Life-Threatening, Hospitalization, Other)
  Sender: FDA-Public Use
  Company Number: SE-BRACCO-2020SE03947

PATIENT
  Age: 81 Year
  Sex: Female

DRUGS (6)
  1. SONOVUE [Suspect]
     Active Substance: SULFUR HEXAFLUORIDE
     Indication: ULTRASOUND LIVER
     Dosage: 2.4 ML, SINGLE;8 MIKROLITER/ML
     Route: 058
     Dates: start: 20200907, end: 20200907
  2. SONOVUE [Suspect]
     Active Substance: SULFUR HEXAFLUORIDE
     Indication: ULTRASOUND LIVER
     Dosage: 2.4 ML, SINGLE;8 MIKROLITER/ML
     Route: 058
     Dates: start: 20200907, end: 20200907
  3. SONOVUE [Suspect]
     Active Substance: SULFUR HEXAFLUORIDE
     Indication: ULTRASOUND LIVER
     Dosage: 2.4 ML, SINGLE
     Route: 042
     Dates: start: 20200907, end: 20200907
  4. SONOVUE [Suspect]
     Active Substance: SULFUR HEXAFLUORIDE
     Indication: ULTRASOUND LIVER
     Dosage: 2.4 ML, SINGLE
     Route: 042
     Dates: start: 20200907, end: 20200907
  5. SONOVUE [Suspect]
     Active Substance: SULFUR HEXAFLUORIDE
     Indication: ULTRASOUND LIVER
     Dosage: 2.4 ML, SINGLE
     Route: 042
     Dates: start: 20200907, end: 20200907
  6. SONOVUE [Suspect]
     Active Substance: SULFUR HEXAFLUORIDE
     Indication: ULTRASOUND LIVER
     Dosage: 2.4 ML, SINGLE;8 MIKROLITER/ML
     Route: 058
     Dates: start: 20200907, end: 20200907

REACTIONS (2)
  - Incorrect route of product administration [Not Recovered/Not Resolved]
  - Pulmonary oedema [Not Recovered/Not Resolved]

NARRATIVE: CASE EVENT DATE: 20200907
